FAERS Safety Report 5011240-5 (Version None)
Quarter: 2006Q2

REPORT INFORMATION
  Report Type: 
  Country: None (occurrence: None)
  Receive Date: 20060523
  Receipt Date: 20060512
  Transmission Date: 20061013
  Serious: Yes (Other)
  Sender: FDA-Public Use
  Company Number: 2006US000990

PATIENT
  Age: 37 Year
  Sex: Female

DRUGS (3)
  1. PROGRAF [Suspect]
     Indication: PROPHYLAXIS AGAINST TRANSPLANT REJECTION
     Dosage: 10 MG AM/11 MG PM, ORAL
     Route: 048
  2. RAPAMUNE [Concomitant]
  3. CELLCEPT [Concomitant]

REACTIONS (2)
  - GUILLAIN-BARRE SYNDROME [None]
  - PARALYSIS [None]
